FAERS Safety Report 5075038-4 (Version None)
Quarter: 2006Q3

REPORT INFORMATION
  Report Type: 
  Country: None (occurrence: None)
  Receive Date: 20060809
  Receipt Date: 20050913
  Transmission Date: 20061208
  Serious: Yes (Hospitalization)
  Sender: FDA-Public Use
  Company Number: US-AMGEN-US146323

PATIENT
  Sex: Female
  Weight: 97.6 kg

DRUGS (11)
  1. EPOGEN [Suspect]
     Indication: DIALYSIS
     Dates: start: 20011001
  2. PHOSLO [Concomitant]
     Route: 048
     Dates: start: 20050628
  3. FOSRENOL [Concomitant]
     Route: 048
     Dates: start: 20050628
  4. HECTORAL [Concomitant]
     Dates: end: 20050701
  5. VENOFER [Concomitant]
     Dates: start: 20050711
  6. METOPROLOL TARTRATE [Concomitant]
     Dates: start: 20050111
  7. PREVACID [Concomitant]
     Dates: start: 20040731
  8. AVANDIA [Concomitant]
     Dates: start: 20030825
  9. LIPITOR [Concomitant]
     Dates: start: 20050517
  10. LOTREL [Concomitant]
     Dates: start: 20020305
  11. HUMULIN N [Concomitant]
     Dates: start: 20040731

REACTIONS (2)
  - ANGINA PECTORIS [None]
  - THERAPEUTIC RESPONSE DECREASED [None]
